FAERS Safety Report 6091634-X (Version None)
Quarter: 2009Q1

REPORT INFORMATION
  Report Type: 
  Country: None (occurrence: None)
  Receive Date: 20090225
  Receipt Date: 20080313
  Transmission Date: 20090719
  Serious: No
  Sender: FDA-Public Use
  Company Number: A0715246A

PATIENT
  Age: 36 Year
  Sex: Female

DRUGS (1)
  1. VALTREX [Suspect]
     Dosage: 1G UNKNOWN
     Route: 048
     Dates: start: 20080310

REACTIONS (4)
  - BLISTER [None]
  - BURNING SENSATION [None]
  - PARAESTHESIA [None]
  - RASH [None]
